FAERS Safety Report 6071823-0 (Version None)
Quarter: 2009Q1

REPORT INFORMATION
  Report Type: 
  Country: None (occurrence: None)
  Receive Date: 20090210
  Receipt Date: 20090202
  Transmission Date: 20090719
  Serious: Yes (Other)
  Sender: FDA-Public Use
  Company Number: PHEH2009US01384

PATIENT

DRUGS (1)
  1. EXELON [Suspect]
     Dosage: 4.6 UNK, UNK
     Route: 062

REACTIONS (1)
  - SYNCOPE [None]
